FAERS Safety Report 13644368 (Version 1)
Quarter: 2017Q2

REPORT INFORMATION
  Report Type: Spontaneous
  Country: US (occurrence: US)
  Receive Date: 20170612
  Receipt Date: 20170612
  Transmission Date: 20170830
  Serious: No
  Sender: FDA-Public Use
  Company Number: US-ROCHE-680036

PATIENT
  Age: 37 Year
  Sex: Male

DRUGS (2)
  1. KLONOPIN [Suspect]
     Active Substance: CLONAZEPAM
     Indication: ANXIETY
     Route: 048
  2. LEXAPRO [Suspect]
     Active Substance: ESCITALOPRAM OXALATE
     Indication: ANXIETY
     Route: 048

REACTIONS (2)
  - Fatigue [Not Recovered/Not Resolved]
  - Somnolence [Not Recovered/Not Resolved]

NARRATIVE: CASE EVENT DATE: 20100101
